FAERS Safety Report 7978815-2 (Version None)
Quarter: 2011Q4

REPORT INFORMATION
  Report Type: 
  Country: None (occurrence: None)
  Receive Date: 20111214
  Receipt Date: 20111208
  Transmission Date: 20120403
  Serious: Yes (Death, Life-Threatening, Hospitalization)
  Sender: FDA-Public Use
  Company Number: BE-BRISTOL-MYERS SQUIBB COMPANY-15380587

PATIENT
  Age: 76 Year
  Sex: Male
  Weight: 80 kg

DRUGS (6)
  1. CISPLATIN [Suspect]
     Indication: HEAD AND NECK CANCER
     Dosage: DAY 1 EVERY 21 DAYS
     Route: 042
     Dates: start: 20101028
  2. CETUXIMAB [Suspect]
     Indication: HEAD AND NECK CANCER
     Dosage: LAST DOSE ON 05NOV2010 28OCT10;400MG/M2 4NOV10-ONG;250MG/M2 WEEKLY
     Route: 042
     Dates: start: 20101028
  3. PEMETREXED DISODIUM [Suspect]
     Indication: HEAD AND NECK CANCER
     Dosage: DAY 1 EVERY 21DAYS
     Route: 042
     Dates: start: 20101028
  4. DEXAMETHASONE [Concomitant]
     Indication: PROPHYLAXIS
     Dates: start: 20101027, end: 20101107
  5. VITAMIN B-12 [Concomitant]
     Indication: PROPHYLAXIS
     Dates: start: 20101020, end: 20101107
  6. FOLIC ACID [Concomitant]
     Indication: PROPHYLAXIS
     Dates: start: 20101020, end: 20101107

REACTIONS (5)
  - FEBRILE NEUTROPENIA [None]
  - THROMBOCYTOPENIA [None]
  - SEPSIS [None]
  - RESPIRATORY FAILURE [None]
  - TUMOUR EMBOLISM [None]
